FAERS Safety Report 8820014 (Version 1)
Quarter: 2012Q4

REPORT INFORMATION
  Report Type: 
  Country: US (occurrence: US)
  Receive Date: 20121001
  Receipt Date: 20121001
  Transmission Date: 20130627
  Serious: Yes (Other)
  Sender: FDA-Public Use
  Company Number: US-ELI_LILLY_AND_COMPANY-US201209005756

PATIENT
  Sex: Male

DRUGS (2)
  1. CYMBALTA [Suspect]
     Indication: MAJOR DEPRESSION
     Dosage: 60 mg, UNK
  2. CYMBALTA [Suspect]
     Dosage: 50 mg, UNK

REACTIONS (4)
  - Cerebrovascular accident [Unknown]
  - Cardiac disorder [Unknown]
  - Irritability [Recovered/Resolved]
  - Restlessness [Recovered/Resolved]
